FAERS Safety Report 9066781 (Version 2)
Quarter: 2013Q1

REPORT INFORMATION
  Report Type: Spontaneous
  Country: US (occurrence: US)
  Receive Date: 20130214
  Receipt Date: 20130315
  Transmission Date: 20140127
  Serious: Yes (Hospitalization)
  Sender: FDA-Public Use
  Company Number: US-GLAXOSMITHKLINE-A1012086A

PATIENT
  Age: 47 Year
  Sex: Female

DRUGS (3)
  1. FLOLAN [Suspect]
     Indication: PRODUCT USED FOR UNKNOWN INDICATION
     Dosage: 28.5NGKM CONTINUOUS
     Route: 042
     Dates: start: 20080125
  2. LETAIRIS [Concomitant]
  3. LASIX [Concomitant]

REACTIONS (1)
  - Device leakage [Unknown]
